FAERS Safety Report 8113290-9 (Version None)
Quarter: 2012Q1

REPORT INFORMATION
  Report Type: 
  Country: None (occurrence: None)
  Receive Date: 20120203
  Receipt Date: 20120127
  Transmission Date: 20120608
  Serious: Yes (Other)
  Sender: FDA-Public Use
  Company Number: PHEH2012US002486

PATIENT
  Age: 74 Year
  Sex: Female

DRUGS (1)
  1. VALTURNA [Suspect]
     Dosage: 1 DF, PER DAY

REACTIONS (1)
  - BREAST CANCER [None]
